FAERS Safety Report 8427189-1 (Version None)
Quarter: 2012Q2

REPORT INFORMATION
  Report Type: 
  Country: None (occurrence: None)
  Receive Date: 20120611
  Receipt Date: 20120605
  Transmission Date: 20120825
  Serious: Yes (Hospitalization, Other)
  Sender: FDA-Public Use
  Company Number: US-PFIZER INC-2012084308

PATIENT
  Sex: Male

DRUGS (18)
  1. TERAZOSIN [Concomitant]
  2. MIRALAX [Concomitant]
  3. MEGACE [Concomitant]
  4. KAOPECTATE [Concomitant]
  5. PHENERGAN [Concomitant]
  6. SUTENT [Suspect]
     Dosage: 50 MG, EVERY OTHER DAY
     Route: 048
     Dates: start: 20120418
  7. OMEPRAZOLE [Concomitant]
  8. LORTAB [Concomitant]
     Indication: PAIN
  9. LASIX [Concomitant]
  10. SUTENT [Suspect]
     Indication: METASTATIC RENAL CELL CARCINOMA
     Dosage: 50 MG, (1 CAPSULE) DAILY CYCLE 4 WEEKS ON AND 2 WEEKS OFF
     Route: 048
     Dates: start: 20120321, end: 20120405
  11. FOLTX [Concomitant]
  12. SUCRALFATE [Concomitant]
  13. SIMVASTATIN [Concomitant]
  14. METOPROLOL [Concomitant]
  15. LISINOPRIL AND HYDROCHLOROTHIAZIDE [Concomitant]
  16. ZOFRAN [Concomitant]
  17. OXYCONTIN [Suspect]
  18. COUMADIN [Concomitant]

REACTIONS (17)
  - HAEMORRHAGE [None]
  - PAIN [None]
  - AZOTAEMIA [None]
  - NAUSEA [None]
  - CONFUSIONAL STATE [None]
  - HYPONATRAEMIA [None]
  - DECREASED APPETITE [None]
  - HALLUCINATION [None]
  - BLOOD PRESSURE ABNORMAL [None]
  - FATIGUE [None]
  - YELLOW SKIN [None]
  - DYSPNOEA [None]
  - WEIGHT DECREASED [None]
  - ASTHENIA [None]
  - PYREXIA [None]
  - PAIN IN EXTREMITY [None]
  - MUSCULOSKELETAL PAIN [None]
